FAERS Safety Report 11101385 (Version 2)
Quarter: 2015Q3

REPORT INFORMATION
  Report Type: Report from Study
  Country: US (occurrence: US)
  Receive Date: 20150508
  Receipt Date: 20150826
  Transmission Date: 20151125
  Serious: No
  Sender: FDA-Public Use
  Company Number: US-PFIZER INC-2015153939

PATIENT
  Age: 45 Year
  Sex: Female

DRUGS (9)
  1. IBUPROFEN. [Concomitant]
     Active Substance: IBUPROFEN
  2. LITHIUM. [Concomitant]
     Active Substance: LITHIUM
  3. AMBRISENTAN [Suspect]
     Active Substance: AMBRISENTAN
     Indication: COR PULMONALE CHRONIC
     Dosage: 10 MG, 1X/DAY
     Dates: start: 20150121
  4. VESICARE [Concomitant]
     Active Substance: SOLIFENACIN SUCCINATE
  5. BIOTENE /03475601/ [Concomitant]
  6. SILDENAFIL CITRATE. [Suspect]
     Active Substance: SILDENAFIL CITRATE
     Dosage: UNK
  7. PERCOCET [Concomitant]
     Active Substance: ACETAMINOPHEN\OXYCODONE HYDROCHLORIDE
     Dosage: UNK
  8. AMBIEN [Concomitant]
     Active Substance: ZOLPIDEM TARTRATE
     Dosage: UNK
  9. VITAMIN B COMPLEX [Concomitant]
     Active Substance: CYANOCOBALAMIN\DEXPANTHENOL\NIACINAMIDE\PYRIDOXINE HYDROCHLORIDE\RIBOFLAVIN 5^-PHOSPHATE SODIUM\THIAMINE HYDROCHLORIDE\VITAMIN B COMPLEX

REACTIONS (2)
  - Contusion [Unknown]
  - Condition aggravated [Unknown]

NARRATIVE: CASE EVENT DATE: 20150303
